FAERS Safety Report 24888011 (Version 1)
Quarter: 2025Q1

REPORT INFORMATION
  Report Type: Spontaneous
  Country: US (occurrence: US)
  Receive Date: 20250127
  Receipt Date: 20250127
  Transmission Date: 20250408
  Serious: Yes (Other)
  Sender: JOHNSON AND JOHNSON
  Company Number: US-JNJFOC-20250149232

PATIENT

DRUGS (4)
  1. DARZALEX FASPRO [Suspect]
     Active Substance: DARATUMUMAB\HYALURONIDASE-FIHJ
     Indication: Product used for unknown indication
  2. BORTEZOMIB [Suspect]
     Active Substance: BORTEZOMIB
     Indication: Product used for unknown indication
  3. DEXAMETHASONE [Suspect]
     Active Substance: DEXAMETHASONE
     Indication: Product used for unknown indication
  4. CYCLOPHOSPHAMIDE [Suspect]
     Active Substance: CYCLOPHOSPHAMIDE
     Indication: Product used for unknown indication

REACTIONS (10)
  - Pulmonary amyloidosis [Unknown]
  - Dysphonia [Unknown]
  - Adverse drug reaction [Unknown]
  - Chest discomfort [Unknown]
  - Headache [Unknown]
  - Cough [Unknown]
  - Fatigue [Unknown]
  - Respiratory disorder [Unknown]
  - Rhinorrhoea [Unknown]
  - Chills [Unknown]
